FAERS Safety Report 6674145-X (Version None)
Quarter: 2010Q2

REPORT INFORMATION
  Report Type: 
  Country: None (occurrence: None)
  Receive Date: 20100409
  Receipt Date: 20100331
  Transmission Date: 20101027
  Serious: Yes (Hospitalization, Other)
  Sender: FDA-Public Use
  Company Number: CA-ASTRAZENECA-2010SE14252

PATIENT
  Sex: Female

DRUGS (2)
  1. SYMBICORT [Suspect]
     Indication: ASTHMA
     Dosage: 200/6
     Route: 055
     Dates: start: 20091001
  2. SYMBICORT [Suspect]
     Indication: CHRONIC OBSTRUCTIVE PULMONARY DISEASE
     Dosage: 200/6
     Route: 055
     Dates: start: 20091001

REACTIONS (4)
  - LUNG NEOPLASM MALIGNANT [None]
  - SURGERY [None]
  - VISUAL ACUITY REDUCED [None]
  - WEIGHT INCREASED [None]
